FAERS Safety Report 14067659 (Version 1)
Quarter: 2017Q4

REPORT INFORMATION
  Report Type: Spontaneous
  Country: GB (occurrence: GB)
  Receive Date: 20171010
  Receipt Date: 20171010
  Transmission Date: 20180321
  Serious: Yes (Death, Hospitalization)
  Sender: FDA-Public Use
  Company Number: GB-ACCORD-059629

PATIENT
  Age: 42 Year
  Sex: Male

DRUGS (1)
  1. CAPECITABINE. [Suspect]
     Active Substance: CAPECITABINE
     Indication: INTESTINAL ADENOCARCINOMA

REACTIONS (10)
  - Dihydropyrimidine dehydrogenase deficiency [Not Recovered/Not Resolved]
  - Cardiac arrest [Fatal]
  - Gastrointestinal haemorrhage [Fatal]
  - Vomiting [Unknown]
  - Rash macular [Unknown]
  - Mucosal inflammation [Unknown]
  - Diarrhoea [Unknown]
  - Neutropenia [Unknown]
  - Skin disorder [Unknown]
  - Nausea [Unknown]

NARRATIVE: CASE EVENT DATE: 20170428
